FAERS Safety Report 20955251 (Version 1)
Quarter: 2022Q2

REPORT INFORMATION
  Report Type: Spontaneous
  Country: US (occurrence: None)
  Receive Date: 20220613
  Receipt Date: 20220613
  Transmission Date: 20220720
  Serious: No
  Sender: FDA-Public Use
  Company Number: None

PATIENT
  Age: 47 Year
  Sex: Female
  Weight: 122.47 kg

DRUGS (1)
  1. STELARA [Suspect]
     Active Substance: USTEKINUMAB
     Indication: Crohn^s disease
     Dosage: INJECT 90MG  SUBCUTANEOUSLY EVERY  6 WEEKS AS DIRECTED
     Route: 058
     Dates: start: 202201

REACTIONS (1)
  - Bacterial vaginosis [None]
